FAERS Safety Report 9250845 (Version 1)
Quarter: 2013Q1

REPORT INFORMATION
  Report Type: Spontaneous
  Country: US (occurrence: None)
  Receive Date: 20130305
  Receipt Date: 20130305
  Transmission Date: 20140127
  Serious: Yes (Hospitalization, Other)
  Sender: FDA-Public Use
  Company Number: 163-21880-12061862 (0)

PATIENT
  Age: 54 Year
  Sex: Male
  Weight: 71.5 kg

DRUGS (20)
  1. REVLIMID [Suspect]
     Dosage: 21 IN 21 D
     Route: 048
     Dates: start: 20111018, end: 20120512
  2. RITUXIMAB (RITUXIMAB) [Concomitant]
  3. FLUCONAZOLE (FLUCONAZOLE) [Concomitant]
  4. ACYCLOVIR (ACICLOVIR) (ACICLOVIR) [Concomitant]
  5. PACKED RED BLOOD CELLS (BLOOD , PACK HUMAN) [Concomitant]
  6. SENNA-S (COLOXYL WITH SENNA) [Concomitant]
  7. OS-CAL (OS-CAL) [Concomitant]
  8. CEFPODOXIME (CEFPODOXIME) [Concomitant]
  9. GEMIFIBROZIL (GEMFIBROZIL) [Concomitant]
  10. LEVOTHYROXINE [Concomitant]
  11. MAGNESIUM (MAGNESIUM) [Concomitant]
  12. POTASSIUM CHLORIDE (POTASSIUM CHLORIDE) [Concomitant]
  13. MEGACE (MEGESTROL ACETATE) [Concomitant]
  14. VITAMINS [Concomitant]
  15. OXYCODONE (OXYCODONE) [Concomitant]
  16. PROTONIX [Concomitant]
  17. PREDNISONE (PREDNISONE) [Concomitant]
  18. SULFASALAZINE (SULFASALAZINE) [Concomitant]
  19. URSODIL (URSODEOXYCHOLIC) [Concomitant]
  20. ZOLPIDEM (ZOLPIDEM) [Concomitant]

REACTIONS (8)
  - Sepsis [None]
  - Hypotension [None]
  - Atrial fibrillation [None]
  - Pneumonia [None]
  - Thrombophlebitis superficial [None]
  - Thrombocytopenia [None]
  - Neutropenia [None]
  - White blood cell count decreased [None]
